FAERS Safety Report 20146128 (Version 1)
Quarter: 2021Q4

REPORT INFORMATION
  Report Type: Spontaneous
  Country: US (occurrence: None)
  Receive Date: 20211203
  Receipt Date: 20211203
  Transmission Date: 20220303
  Serious: Yes (Death)
  Sender: FDA-Public Use
  Company Number: None

PATIENT
  Sex: Female

DRUGS (12)
  1. TAFINLAR [Suspect]
     Active Substance: DABRAFENIB MESYLATE
     Indication: Lung carcinoma cell type unspecified stage 0
     Dosage: FREQUENCY : TWICE A DAY;?
     Route: 048
     Dates: start: 20210211, end: 20211124
  2. apple cider vinegar caps [Concomitant]
  3. cranberry tabs [Concomitant]
  4. LASIX [Concomitant]
     Active Substance: FUROSEMIDE
  5. HYDROXYUREA [Concomitant]
     Active Substance: HYDROXYUREA
  6. LIPOFLAVON [Concomitant]
  7. Anoro Ellipta Aer [Concomitant]
  8. CALCIUM [Concomitant]
     Active Substance: CALCIUM
  9. VITAMIN D3 [Concomitant]
     Active Substance: CHOLECALCIFEROL
  10. ELIQUIS [Concomitant]
     Active Substance: APIXABAN
  11. VITAMIN B COMPLEX [Concomitant]
     Active Substance: CYANOCOBALAMIN\DEXPANTHENOL\NIACINAMIDE\PYRIDOXINE HYDROCHLORIDE\RIBOFLAVIN 5^-PHOSPHATE SODIUM\THIA
  12. multivitamin adult 50+ [Concomitant]

REACTIONS (1)
  - Lung neoplasm malignant [None]

NARRATIVE: CASE EVENT DATE: 20211124
